FAERS Safety Report 11385841 (Version 1)
Quarter: 2015Q3

REPORT INFORMATION
  Report Type: Report from Study
  Country: IT (occurrence: IT)
  Receive Date: 20150817
  Receipt Date: 20150817
  Transmission Date: 20151125
  Serious: Yes (Death, Hospitalization)
  Sender: FDA-Public Use
  Company Number: IT-009507513-1508ITA005720

PATIENT
  Age: 63 Year
  Sex: Female

DRUGS (2)
  1. RIBAVIRIN. [Suspect]
     Active Substance: RIBAVIRIN
     Indication: HEPATITIS C
     Dosage: 800 MG, UNKNOWN
     Dates: start: 20140924
  2. SOFOSBUVIR [Suspect]
     Active Substance: SOFOSBUVIR
     Indication: HEPATITIS C

REACTIONS (4)
  - Ascites [Fatal]
  - Asthenia [Fatal]
  - Generalised oedema [Fatal]
  - Femur fracture [Fatal]

NARRATIVE: CASE EVENT DATE: 20150108
